FAERS Safety Report 19266375 (Version 1)
Quarter: 2021Q2

REPORT INFORMATION
  Report Type: Spontaneous
  Country: US (occurrence: US)
  Receive Date: 20210517
  Receipt Date: 20210517
  Transmission Date: 20210717
  Serious: No
  Sender: FDA-Public Use
  Company Number: US-BAYER-2021-141835

PATIENT
  Age: 72 Year
  Sex: Female

DRUGS (7)
  1. CLARITIN LIQUI?GELS [Suspect]
     Active Substance: LORATADINE
     Indication: NASOPHARYNGITIS
  2. FLONASE ALLERGY RELIEF [Concomitant]
     Active Substance: FLUTICASONE PROPIONATE
  3. MIGRAINE [ACETYLSALICYLIC ACID;CAFFEINE;PARACETAMOL] [Concomitant]
  4. CLARITIN LIQUI?GELS [Suspect]
     Active Substance: LORATADINE
     Indication: PRURITUS
  5. CLARITIN LIQUI?GELS [Suspect]
     Active Substance: LORATADINE
     Indication: EYE PRURITUS
  6. CLARITIN LIQUI?GELS [Suspect]
     Active Substance: LORATADINE
     Indication: HYPERSENSITIVITY
     Dosage: 1 DF, QD
     Route: 048
     Dates: start: 20210105
  7. VITAMINS NOS [Concomitant]
     Active Substance: VITAMINS

REACTIONS (1)
  - Drug ineffective [Not Recovered/Not Resolved]

NARRATIVE: CASE EVENT DATE: 20210514
